FAERS Safety Report 8662800 (Version 3)
Quarter: 2012Q4

REPORT INFORMATION
  Report Type: Report from Study
  Country: JP (occurrence: JP)
  Receive Date: 20120712
  Receipt Date: 20121019
  Transmission Date: 20130627
  Serious: Yes (Other)
  Sender: FDA-Public Use
  Company Number: JP-JNJFOC-20120704142

PATIENT
  Age: 60 Year
  Sex: Female
  Weight: 55 kg

DRUGS (13)
  1. SIMPONI [Suspect]
     Indication: RHEUMATOID ARTHRITIS
     Route: 058
     Dates: start: 20120307, end: 20120307
  2. SIMPONI [Suspect]
     Indication: RHEUMATOID ARTHRITIS
     Route: 058
     Dates: start: 20120208
  3. SIMPONI [Suspect]
     Indication: RHEUMATOID ARTHRITIS
     Route: 058
     Dates: start: 20120111
  4. SIMPONI [Suspect]
     Indication: RHEUMATOID ARTHRITIS
     Route: 058
     Dates: start: 20111115
  5. SIMPONI [Suspect]
     Indication: RHEUMATOID ARTHRITIS
     Route: 058
     Dates: start: 20111212
  6. METHOTREXATE [Suspect]
     Indication: RHEUMATOID ARTHRITIS
     Route: 048
     Dates: start: 200607
  7. ETANERCEPT [Concomitant]
     Dates: end: 20111102
  8. ISONIAZID [Concomitant]
     Indication: PROPHYLAXIS
     Route: 048
     Dates: end: 20120416
  9. ETODOLAC [Concomitant]
     Indication: RHEUMATOID ARTHRITIS
     Route: 048
  10. LAFUTIDINE [Concomitant]
     Route: 048
  11. AMLODIPINE [Concomitant]
     Route: 048
  12. TERIPARATIDE [Concomitant]
     Route: 058
     Dates: start: 20111208, end: 20120516
  13. MAGNESIUM OXIDE [Concomitant]
     Route: 048
     Dates: start: 20120111

REACTIONS (1)
  - Hepatitis C [Not Recovered/Not Resolved]
